FAERS Safety Report 13131003 (Version 5)
Quarter: 2017Q3

REPORT INFORMATION
  Report Type: Spontaneous
  Country: US (occurrence: US)
  Receive Date: 20170119
  Receipt Date: 20170808
  Transmission Date: 20171127
  Serious: Yes (Death, Other)
  Sender: FDA-Public Use
  Company Number: US-SAOL THERAPEUTICS-2017SAO00075

PATIENT
  Age: 39 Year
  Sex: Female
  Weight: 102.5 kg

DRUGS (20)
  1. METHYLPHENIDATE. [Concomitant]
     Active Substance: METHYLPHENIDATE
  2. METHADONE [Concomitant]
     Active Substance: METHADONE HYDROCHLORIDE
  3. GABLOFEN [Suspect]
     Active Substance: BACLOFEN
     Dosage: 599.2 ?G, \DAY
  4. LORAZEPAM. [Concomitant]
     Active Substance: LORAZEPAM
     Dosage: UNK, AS NEEDED
  5. PERCOCET [Concomitant]
     Active Substance: ACETAMINOPHEN\OXYCODONE HYDROCHLORIDE
     Dosage: UNK, AS NEEDED
  6. OXYCODONE [Concomitant]
     Active Substance: OXYCODONE
     Dosage: UNK, AS NEEDED
  7. MUPIROCIN. [Concomitant]
     Active Substance: MUPIROCIN
     Route: 061
  8. MARINOL [Concomitant]
     Active Substance: DRONABINOL
     Dosage: UNK, AS NEEDED
  9. GABLOFEN [Suspect]
     Active Substance: BACLOFEN
     Dosage: 500 ?G, \DAY
     Route: 037
  10. BELVIQ [Concomitant]
     Active Substance: LORCASERIN HYDROCHLORIDE
  11. BACLOFEN. [Concomitant]
     Active Substance: BACLOFEN
     Dosage: UNK, AS NEEDED
     Route: 048
  12. CYANOCOBALAMIN. [Concomitant]
     Active Substance: CYANOCOBALAMIN
  13. DESONIDE. [Concomitant]
     Active Substance: DESONIDE
     Route: 061
  14. TYLENOL [Concomitant]
     Active Substance: ACETAMINOPHEN
     Dosage: UNK, AS NEEDED
  15. PROMETHAZINE [Concomitant]
     Active Substance: PROMETHAZINE\PROMETHAZINE HYDROCHLORIDE
  16. HYDROCHLOROTHIAZIDE. [Concomitant]
     Active Substance: HYDROCHLOROTHIAZIDE
  17. GABAPENTIN. [Concomitant]
     Active Substance: GABAPENTIN
  18. POTASSIUM CHLORIDE. [Concomitant]
     Active Substance: POTASSIUM CHLORIDE
  19. SERTRALINE [Concomitant]
     Active Substance: SERTRALINE HYDROCHLORIDE
  20. TORSEMIDE. [Concomitant]
     Active Substance: TORSEMIDE

REACTIONS (10)
  - Implant site pain [Recovering/Resolving]
  - Fall [Recovered/Resolved]
  - Device connection issue [Unknown]
  - Cerebrospinal fluid leakage [Unknown]
  - Device extrusion [Unknown]
  - Device damage [Recovered/Resolved]
  - Death [Fatal]
  - Nausea [Unknown]
  - Therapeutic response decreased [Recovered/Resolved]
  - Surgery [Unknown]

NARRATIVE: CASE EVENT DATE: 2016
